FAERS Safety Report 19501221 (Version 3)
Quarter: 2021Q3

REPORT INFORMATION
  Report Type: Report from Study
  Country: CN (occurrence: CN)
  Receive Date: 20210707
  Receipt Date: 20210728
  Transmission Date: 20211014
  Serious: Yes (Hospitalization)
  Sender: FDA-Public Use
  Company Number: CN-KARYOPHARM-2021KPT000879

PATIENT
  Age: 33 Year
  Sex: Male

DRUGS (6)
  1. SELINEXOR [Suspect]
     Active Substance: SELINEXOR
     Indication: PERIPHERAL T-CELL LYMPHOMA UNSPECIFIED REFRACTORY
     Dosage: 60 MG 1 IN 1 D
     Route: 048
     Dates: start: 20210617, end: 20210617
  2. GEMCITABINE. [Suspect]
     Active Substance: GEMCITABINE
     Indication: ANGIOCENTRIC LYMPHOMA
     Dosage: 1536 MG, WEEKLY
     Route: 042
     Dates: start: 20210709, end: 20210709
  3. OXALIPLATIN. [Suspect]
     Active Substance: OXALIPLATIN
     Indication: PERIPHERAL T-CELL LYMPHOMA UNSPECIFIED REFRACTORY
     Dosage: 199.68 MG 1 IN 1 D
     Route: 042
     Dates: start: 20210617, end: 20210617
  4. OXALIPLATIN. [Suspect]
     Active Substance: OXALIPLATIN
     Indication: ANGIOCENTRIC LYMPHOMA
     Dosage: 199.68 MG, 1X/3 WEEKS
     Route: 042
     Dates: start: 20210709, end: 20210709
  5. SELINEXOR [Suspect]
     Active Substance: SELINEXOR
     Indication: ANGIOCENTRIC LYMPHOMA
     Dosage: 49 MG, WEEKLY
     Route: 048
     Dates: start: 20210709, end: 20210709
  6. GEMCITABINE. [Suspect]
     Active Substance: GEMCITABINE
     Indication: PERIPHERAL T-CELL LYMPHOMA UNSPECIFIED REFRACTORY
     Dosage: 1536 MG 1 IN 1 D
     Route: 042
     Dates: start: 20210617, end: 20210617

REACTIONS (1)
  - Platelet count decreased [Recovered/Resolved]

NARRATIVE: CASE EVENT DATE: 20210624
